FAERS Safety Report 6791154-0 (Version None)
Quarter: 2010Q2

REPORT INFORMATION
  Report Type: 
  Country: None (occurrence: None)
  Receive Date: 20100624
  Receipt Date: 20100614
  Transmission Date: 20101027
  Serious: Yes (Other)
  Sender: FDA-Public Use
  Company Number: BR-PFIZER INC-2010074288

PATIENT
  Age: 60 Year
  Sex: Female

DRUGS (4)
  1. CELEBRA [Suspect]
     Dosage: 400 MG, 1X/DAY
     Route: 048
     Dates: start: 20090925, end: 20091101
  2. RIVOTRIL [Concomitant]
     Dosage: UNK
     Dates: start: 20010614
  3. ACTIVELLE [Concomitant]
     Dosage: UNK
     Dates: start: 20000614
  4. LEVOTHYROXINE SODIUM [Concomitant]
     Dosage: UNK
     Dates: start: 20000614

REACTIONS (2)
  - BLOOD PRESSURE FLUCTUATION [None]
  - BLOOD PRESSURE INCREASED [None]
